FAERS Safety Report 10917271 (Version 1)
Quarter: 2015Q1

REPORT INFORMATION
  Report Type: Spontaneous
  Country: FR (occurrence: FR)
  Receive Date: 20150316
  Receipt Date: 20150316
  Transmission Date: 20150721
  Serious: Yes (Hospitalization)
  Sender: FDA-Public Use
  Company Number: FR-JNJFOC-20150307562

PATIENT
  Age: 88 Year
  Sex: Male

DRUGS (9)
  1. XARELTO [Suspect]
     Active Substance: RIVAROXABAN
     Indication: CEREBROVASCULAR ACCIDENT PROPHYLAXIS
     Route: 048
     Dates: start: 20130531, end: 20150213
  2. XARELTO [Suspect]
     Active Substance: RIVAROXABAN
     Indication: ATRIAL FIBRILLATION
     Route: 048
     Dates: start: 20130531, end: 20150213
  3. ALDACTAZINE [Concomitant]
     Active Substance: ALTHIAZIDE\SPIRONOLACTONE
     Route: 048
     Dates: start: 20150211, end: 20150213
  4. FUROSEMIDE. [Concomitant]
     Active Substance: FUROSEMIDE
     Route: 048
     Dates: end: 20150211
  5. CRESTOR [Concomitant]
     Active Substance: ROSUVASTATIN CALCIUM
     Route: 048
     Dates: end: 20150213
  6. PERMIXON [Concomitant]
     Active Substance: SAW PALMETTO
     Route: 048
  7. LECTIL [Concomitant]
     Active Substance: BETAHISTINE HYDROCHLORIDE
     Route: 048
     Dates: start: 20141125, end: 20150213
  8. LYSANXIA [Concomitant]
     Active Substance: PRAZEPAM
     Route: 048
     Dates: end: 20150213
  9. XATRAL [Concomitant]
     Active Substance: ALFUZOSIN
     Route: 048

REACTIONS (1)
  - Hypochromic anaemia [Recovering/Resolving]

NARRATIVE: CASE EVENT DATE: 20150213
